FAERS Safety Report 6731281-7 (Version None)
Quarter: 2010Q2

REPORT INFORMATION
  Report Type: 
  Country: None (occurrence: None)
  Receive Date: 20100517
  Receipt Date: 20100517
  Transmission Date: 20101027
  Serious: Yes (Other)
  Sender: FDA-Public Use
  Company Number: None

PATIENT
  Sex: Male
  Weight: 111.1313 kg

DRUGS (1)
  1. ZOLOFT [Suspect]
     Indication: ANXIETY
     Dosage: 100MG TO 50MG DAILY CONTINUAL

REACTIONS (7)
  - DIZZINESS [None]
  - FEELING OF BODY TEMPERATURE CHANGE [None]
  - HYPERHIDROSIS [None]
  - NAUSEA [None]
  - PARAESTHESIA [None]
  - SENSORY DISTURBANCE [None]
  - WITHDRAWAL SYNDROME [None]
